FAERS Safety Report 20767303 (Version 1)
Quarter: 2022Q2

REPORT INFORMATION
  Report Type: Spontaneous
  Country: PT (occurrence: PT)
  Receive Date: 20220429
  Receipt Date: 20220429
  Transmission Date: 20220721
  Serious: Yes (Other)
  Sender: FDA-Public Use
  Company Number: None

PATIENT
  Age: 66 Year
  Sex: Female

DRUGS (2)
  1. IMATINIB [Suspect]
     Active Substance: IMATINIB
     Indication: Gastrointestinal stromal tumour
     Dosage: 400 MILLIGRAM DAILY; ROUTE OF ADMINISTRATION : ORAL (VIA),DURATION  2MONTHS
     Route: 048
     Dates: start: 20220125, end: 20220406
  2. BROTIZOLAM [Concomitant]
     Active Substance: BROTIZOLAM
     Dosage: .25 MILLIGRAM DAILY; 1 TABLET AT BEDTIME,ROUTE OF ADMINISTRATION : ORAL (VIA),THERAPY START DATE NAS
     Route: 048

REACTIONS (6)
  - Decreased appetite [Recovered/Resolved]
  - Rash [Recovered/Resolved]
  - Oedema peripheral [Recovered/Resolved]
  - Eyelid oedema [Recovered/Resolved]
  - Lacrimation increased [Recovered/Resolved]
  - Taste disorder [Recovered/Resolved]

NARRATIVE: CASE EVENT DATE: 20220401
